FAERS Safety Report 6525777-0 (Version None)
Quarter: 2009Q4

REPORT INFORMATION
  Report Type: 
  Country: None (occurrence: None)
  Receive Date: 20091228
  Receipt Date: 20091215
  Transmission Date: 20100525
  Serious: Yes (Disabling)
  Sender: FDA-Public Use
  Company Number: 003401

PATIENT
  Age: 46 Year
  Sex: Female
  Weight: 89.6308 kg

DRUGS (7)
  1. OMEPRAZOLE [Suspect]
  2. SWINE FLU VACCINE, MONOVALENT (SWINE FLU SPLIT DRESDEN INJECTION (SWIN [Suspect]
     Indication: ILL-DEFINED DISORDER
     Dosage: SIGLE DOSE
     Dates: start: 20091211, end: 20091211
  3. ASPIRIN [Suspect]
  4. METOPROLOL (METOPROLOL) [Suspect]
  5. SIMVASTATIN [Suspect]
  6. INFLUENZA VIRUS VACCINE/ 00027001/ [Concomitant]
  7. CO-CODAMOL [Concomitant]

REACTIONS (7)
  - ACTIVITIES OF DAILY LIVING IMPAIRED [None]
  - HEADACHE [None]
  - INJECTION SITE ERYTHEMA [None]
  - INJECTION SITE PAIN [None]
  - INJECTION SITE SWELLING [None]
  - NAUSEA [None]
  - VOMITING [None]
